FAERS Safety Report 8157657-1 (Version None)
Quarter: 2012Q1

REPORT INFORMATION
  Report Type: 
  Country: None (occurrence: None)
  Receive Date: 20120222
  Receipt Date: 20120214
  Transmission Date: 20120608
  Serious: No
  Sender: FDA-Public Use
  Company Number: US-B.I. PHARMACEUTICALS,INC./RIDGEFIELD-2012-BP-01615BP

PATIENT
  Sex: Female
  Weight: 59.42 kg

DRUGS (5)
  1. TRADJENTA [Suspect]
     Indication: TYPE 2 DIABETES MELLITUS
     Dosage: 5 MG
     Route: 048
     Dates: start: 20111201, end: 20111207
  2. IBUPROFEN TABLETS [Concomitant]
     Route: 048
     Dates: start: 20080101
  3. LORAZEPAM [Concomitant]
     Indication: ANXIETY
     Dates: start: 20100101
  4. GLYBURIDE [Concomitant]
     Indication: TYPE 2 DIABETES MELLITUS
     Dosage: 10 MG
     Route: 048
     Dates: start: 20070101
  5. ACTOS [Concomitant]
     Indication: TYPE 2 DIABETES MELLITUS
     Dosage: 30 MG
     Route: 048
     Dates: start: 20111207

REACTIONS (1)
  - LIP SWELLING [None]
